FAERS Safety Report 23021170 (Version 2)
Quarter: 2023Q4

REPORT INFORMATION
  Report Type: Spontaneous
  Country: US (occurrence: US)
  Receive Date: 20231003
  Receipt Date: 20231124
  Transmission Date: 20240109
  Serious: Yes (Hospitalization)
  Sender: FDA-Public Use
  Company Number: US-VERTEX PHARMACEUTICALS-2023-014488

PATIENT

DRUGS (1)
  1. TRIKAFTA [Suspect]
     Active Substance: ELEXACAFTOR\IVACAFTOR\TEZACAFTOR
     Indication: Cystic fibrosis
     Dosage: UNK FREQ
     Route: 048

REACTIONS (6)
  - Blood bilirubin increased [Unknown]
  - Hepatic enzyme abnormal [Unknown]
  - Respiratory syncytial virus infection [Unknown]
  - Parainfluenzae virus infection [Unknown]
  - Influenza [Unknown]
  - Anxiety [Recovering/Resolving]
